FAERS Safety Report 19712320 (Version 4)
Quarter: 2022Q3

REPORT INFORMATION
  Report Type: Report from Study
  Country: EG (occurrence: EG)
  Receive Date: 20210817
  Receipt Date: 20220829
  Transmission Date: 20221027
  Serious: Yes (Other)
  Sender: FDA-Public Use
  Company Number: NVSC2021EG185107

PATIENT
  Age: 18 Year
  Sex: Male

DRUGS (4)
  1. COSENTYX [Suspect]
     Active Substance: SECUKINUMAB
     Indication: Psoriasis
     Dosage: 150 MG, QMO (FOR FOUR WEEKS, AS A LOADING DOSE)
     Route: 058
     Dates: start: 20201101, end: 20210117
  2. COSENTYX [Suspect]
     Active Substance: SECUKINUMAB
     Dosage: 150 MG, QMO (EVERY MONTH, AS A MAINTENANCE DOSE)
     Route: 058
     Dates: start: 202105
  3. COSENTYX [Suspect]
     Active Substance: SECUKINUMAB
     Dosage: 150 MG
     Route: 065
  4. COSENTYX [Suspect]
     Active Substance: SECUKINUMAB
     Dosage: 150 MG, QW (THEN 2 PREFILLED PENS OF COSENTYX 150MG  ONCE MONTHLY THEN 2 PREFILLED PENS OF COSENTYX
     Route: 065

REACTIONS (8)
  - Immunodeficiency [Recovered/Resolved]
  - Accident [Recovered/Resolved]
  - Rebound psoriasis [Unknown]
  - Acne [Unknown]
  - Macule [Unknown]
  - Incorrect dose administered [Unknown]
  - Inappropriate schedule of product administration [Unknown]
  - Product dose omission issue [Not Recovered/Not Resolved]

NARRATIVE: CASE EVENT DATE: 20210117
